FAERS Safety Report 14121810 (Version 1)
Quarter: 2017Q4

REPORT INFORMATION
  Report Type: Spontaneous
  Country: US (occurrence: US)
  Receive Date: 20171024
  Receipt Date: 20171024
  Transmission Date: 20180321
  Serious: No
  Sender: FDA-Public Use
  Company Number: US-PERRIGO-17US025094

PATIENT
  Age: 48 Year
  Sex: Female
  Weight: 58.5 kg

DRUGS (1)
  1. MESALAZINE [Suspect]
     Active Substance: MESALAMINE
     Indication: PROCTITIS
     Dosage: 4 G, QHS
     Route: 054
     Dates: start: 20170626, end: 20170709

REACTIONS (3)
  - Discomfort [Recovered/Resolved]
  - Frequent bowel movements [Recovered/Resolved]
  - Anal incontinence [Recovered/Resolved]

NARRATIVE: CASE EVENT DATE: 20170706
